FAERS Safety Report 7075707-0 (Version None)
Quarter: 2010Q4

REPORT INFORMATION
  Report Type: 
  Country: None (occurrence: None)
  Receive Date: 20101031
  Receipt Date: 20101020
  Transmission Date: 20110411
  Serious: Yes (Hospitalization)
  Sender: FDA-Public Use
  Company Number: PHHO2010IT14959

PATIENT

DRUGS (6)
  1. CGS 20267 T30748+TAB [Suspect]
     Indication: BREAST CANCER
     Dosage: 2.5 MG, QD
     Route: 048
     Dates: start: 20100105
  2. BISOPROLOL [Concomitant]
  3. CEFTRIAXONE [Concomitant]
  4. CITALOPRAM HYDROBROMIDE [Concomitant]
  5. LEVOSULPIRIDE [Concomitant]
  6. KETOROLAC TROMETHAMINE [Concomitant]

REACTIONS (3)
  - AGGRESSION [None]
  - CONFUSIONAL STATE [None]
  - HEADACHE [None]
